FAERS Safety Report 18267149 (Version 1)
Quarter: 2020Q3

REPORT INFORMATION
  Report Type: Spontaneous
  Country: US (occurrence: US)
  Receive Date: 20200514
  Receipt Date: 20200514
  Transmission Date: 20201103
  Serious: No
  Sender: FDA-Public Use
  Company Number: None

PATIENT
  Age: 9 Decade
  Sex: Male

DRUGS (3)
  1. INTERFERON [Suspect]
     Active Substance: INTERFERON
     Indication: COVID-19
  2. RIBAVIRIN. [Suspect]
     Active Substance: RIBAVIRIN
  3. LOPINAVIR?RITONAVIR [Suspect]
     Active Substance: LOPINAVIR\RITONAVIR

REACTIONS (3)
  - Transfusion [None]
  - Product use issue [None]
  - Product use in unapproved indication [None]
